FAERS Safety Report 21234596 (Version 1)
Quarter: 2022Q3

REPORT INFORMATION
  Report Type: Spontaneous
  Country: CA (occurrence: CA)
  Receive Date: 20220820
  Receipt Date: 20220820
  Transmission Date: 20221026
  Serious: Yes (Life-Threatening, Other)
  Sender: FDA-Public Use
  Company Number: CA-AUROBINDO-AUR-APL-2022-032492

PATIENT
  Age: 34 Year
  Sex: Male
  Weight: 106.5 kg

DRUGS (1)
  1. LEVETIRACETAM [Suspect]
     Active Substance: LEVETIRACETAM
     Indication: Epilepsy
     Dosage: 1 DOSAGE FORM TWO TIMES A DAY
     Route: 048

REACTIONS (14)
  - Aggression [Unknown]
  - Agitation [Unknown]
  - Alopecia [Unknown]
  - Anger [Unknown]
  - Back pain [Unknown]
  - Dizziness [Unknown]
  - Fatigue [Unknown]
  - Irritability [Unknown]
  - Mood altered [Unknown]
  - Muscle twitching [Unknown]
  - Panic attack [Unknown]
  - Somnolence [Unknown]
  - Suicidal ideation [Unknown]
  - Violence-related symptom [Unknown]
